FAERS Safety Report 7810379-6 (Version None)
Quarter: 2011Q4

REPORT INFORMATION
  Report Type: 
  Country: None (occurrence: None)
  Receive Date: 20111012
  Receipt Date: 20111004
  Transmission Date: 20120403
  Serious: Yes (Other)
  Sender: FDA-Public Use
  Company Number: US-ROCHE-751313

PATIENT
  Sex: Male
  Weight: 79.45 kg

DRUGS (1)
  1. ACCUTANE [Suspect]
     Indication: ACNE
     Route: 065
     Dates: start: 19990204, end: 19990609

REACTIONS (11)
  - STRESS [None]
  - DEPRESSION [None]
  - BIPOLAR DISORDER [None]
  - DRY SKIN [None]
  - HAEMORRHOIDS [None]
  - STOMATITIS [None]
  - BLOOD TRIGLYCERIDES INCREASED [None]
  - INFLAMMATORY BOWEL DISEASE [None]
  - CROHN'S DISEASE [None]
  - CHAPPED LIPS [None]
  - BACK PAIN [None]
